FAERS Safety Report 4788086-6 (Version None)
Quarter: 2005Q4

REPORT INFORMATION
  Report Type: 
  Country: None (occurrence: None)
  Receive Date: 20051004
  Receipt Date: 20051004
  Transmission Date: 20060501
  Serious: Yes (Hospitalization)
  Sender: FDA-Public Use
  Company Number: None

PATIENT
  Sex: Male
  Weight: 95.9 kg

DRUGS (16)
  1. CYCLOPHOSPHAMIDE [Suspect]
     Indication: ACUTE LYMPHOCYTIC LEUKAEMIA
     Dosage: SEE IMAGE
     Route: 042
     Dates: start: 20050912, end: 20050912
  2. ALLOPURINOL [Suspect]
     Dosage: SEE IMAGE
     Route: 048
  3. DAUNORUBICIN HCL [Suspect]
     Dosage: SEE IMAGE
     Dates: start: 20050914, end: 20050914
  4. VINCRISTINE [Suspect]
     Dosage: SEE IMAGE
     Route: 042
     Dates: start: 20050912, end: 20050912
  5. DEXAMETHASONE [Suspect]
     Dosage: SEE IMAGE
     Route: 048
  6. L-ASPARAGINASE [Suspect]
     Dosage: SEE IMAGE
     Route: 058
     Dates: end: 20050916
  7. G-CSF [Suspect]
     Dosage: SEE IMAGE
     Route: 058
     Dates: end: 20050918
  8. METHOTREXATE [Suspect]
     Dosage: SEE IMAGE
     Route: 037
  9. CYCLOPHOSPHAMIDE [Suspect]
     Dosage: SEE IMAGE
     Route: 042
     Dates: start: 20050912, end: 20050912
  10. CYTARABINE [Suspect]
     Dosage: SEE IMAGE
     Route: 058
  11. L-ASPARAGINASE [Suspect]
     Dosage: SEE IMAGE
     Route: 058
     Dates: end: 20050916
  12. DEXAMETHASONE [Suspect]
     Dosage: SEE IMAGE
  13. G-CSF [Suspect]
     Dosage: SEE IMAGE
     Route: 058
     Dates: end: 20050918
  14. COTRMOXAZOLE DS [Suspect]
     Dosage: SEE IMAGE
     Route: 048
  15. HYDROCORTISONE [Suspect]
     Dosage: SEE IMAGE
     Route: 037
  16. SEROQUEL [Concomitant]

REACTIONS (8)
  - ABDOMINAL PAIN [None]
  - BLOOD TRIGLYCERIDES INCREASED [None]
  - BODY FAT DISORDER [None]
  - DIARRHOEA [None]
  - INADEQUATE ANALGESIA [None]
  - LIPIDS INCREASED [None]
  - NAUSEA [None]
  - ORAL INTAKE REDUCED [None]
